FAERS Safety Report 23307570 (Version 2)
Quarter: 2025Q2

REPORT INFORMATION
  Report Type: Spontaneous
  Country: JP (occurrence: JP)
  Receive Date: 20231218
  Receipt Date: 20250625
  Transmission Date: 20250717
  Serious: Yes (Other)
  Sender: TAKEDA
  Company Number: JP-TAKEDA-2023TUS120709

PATIENT
  Sex: Female

DRUGS (1)
  1. LIALDA [Suspect]
     Active Substance: MESALAMINE
     Indication: Colitis ulcerative
     Dosage: 4800 MILLIGRAM, QD

REACTIONS (12)
  - Foetal arrhythmia [Unknown]
  - Gestational diabetes [Unknown]
  - Abortion [Unknown]
  - Stillbirth [Unknown]
  - Caesarean section [Unknown]
  - Intestinal perforation [Unknown]
  - Colitis ulcerative [Recovered/Resolved]
  - Drug intolerance [Recovered/Resolved]
  - Premature delivery [Unknown]
  - Placental disorder [Unknown]
  - Premature rupture of membranes [Unknown]
  - Exposure during pregnancy [Recovered/Resolved]
